FAERS Safety Report 5166923-3 (Version None)
Quarter: 2006Q4

REPORT INFORMATION
  Report Type: 
  Country: None (occurrence: None)
  Receive Date: 20061207
  Receipt Date: 20061129
  Transmission Date: 20070319
  Serious: Yes (Hospitalization, Other)
  Sender: FDA-Public Use
  Company Number: US-ELI_LILLY_AND_COMPANY-US200612000048

PATIENT
  Sex: Female

DRUGS (1)
  1. HUMULIN 70/30 [Suspect]
     Indication: DIABETES MELLITUS
     Dosage: UNK, UNKNOWN

REACTIONS (7)
  - BLOOD GLUCOSE INCREASED [None]
  - CHONDROPATHY [None]
  - EXOSTOSIS [None]
  - HIP ARTHROPLASTY [None]
  - KNEE ARTHROPLASTY [None]
  - SPINAL COMPRESSION FRACTURE [None]
  - SYNOVIAL CYST [None]
